FAERS Safety Report 8089779-8 (Version None)
Quarter: 2012Q1

REPORT INFORMATION
  Report Type: 
  Country: None (occurrence: None)
  Receive Date: 20120128
  Receipt Date: 20110712
  Transmission Date: 20120608
  Serious: No
  Sender: FDA-Public Use
  Company Number: US-ABBOTT-11P-163-0838675-00

PATIENT
  Sex: Female
  Weight: 63.56 kg

DRUGS (4)
  1. HUMIRA [Suspect]
     Indication: CROHN'S DISEASE
     Route: 058
     Dates: start: 20110101
  2. CYANOCOBALAMIN [Concomitant]
     Indication: SUPPLEMENTATION THERAPY
  3. ZANTAC [Concomitant]
     Indication: DYSPEPSIA
  4. LORAZEPAM [Concomitant]
     Indication: ANXIETY

REACTIONS (3)
  - INJECTION SITE PAIN [None]
  - HEADACHE [None]
  - INJECTION SITE HAEMATOMA [None]
